FAERS Safety Report 6971008-7 (Version None)
Quarter: 2010Q3

REPORT INFORMATION
  Report Type: 
  Country: None (occurrence: None)
  Receive Date: 20100908
  Receipt Date: 20100902
  Transmission Date: 20110219
  Serious: Yes (Death)
  Sender: FDA-Public Use
  Company Number: US-GILEAD-2010-0031156

PATIENT
  Sex: Female

DRUGS (10)
  1. LETAIRIS [Suspect]
     Indication: PULMONARY ARTERIAL HYPERTENSION
     Route: 048
     Dates: start: 20100222
  2. PLAVIX [Concomitant]
  3. COMBIVENT [Concomitant]
  4. ADULT ROBITUSSIN [Concomitant]
  5. TUSSIONEX [Concomitant]
  6. FOSAMAX [Concomitant]
  7. PREDNISONE [Concomitant]
  8. CYCLOPHOSPHAMIDE [Concomitant]
  9. FERROUS SULFATE [Concomitant]
  10. SULFAMETHOXA [Concomitant]

REACTIONS (1)
  - DEATH [None]
